FAERS Safety Report 8980748 (Version 2)
Quarter: 2013Q1

REPORT INFORMATION
  Report Type: Report from Study
  Country: US (occurrence: US)
  Receive Date: 20121221
  Receipt Date: 20130103
  Transmission Date: 20140127
  Serious: Yes (Death, Hospitalization)
  Sender: FDA-Public Use
  Company Number: US-ACTELION-A-NJ2012-75679

PATIENT
  Age: 65 Year
  Sex: Female

DRUGS (5)
  1. VELETRI [Suspect]
     Indication: PULMONARY ARTERIAL HYPERTENSION
     Dosage: 61 NG/KG, UNK
     Route: 041
  2. VELETRI [Suspect]
     Dosage: 51.7 NG/KG, PER MIN
     Route: 041
     Dates: start: 20110823
  3. COUMADIN [Concomitant]
  4. NEURONTIN [Concomitant]
     Dosage: 1200 MG, TID
     Route: 048
     Dates: end: 201212
  5. NEURONTIN [Concomitant]
     Dosage: 600 MG, TID
     Route: 048
     Dates: start: 201212

REACTIONS (8)
  - Hyponatraemia [Recovered/Resolved]
  - Dyskinesia [Recovered/Resolved]
  - Blood creatinine increased [Recovered/Resolved]
  - Death [Fatal]
  - Non-cardiac chest pain [Recovered/Resolved]
  - Pulmonary arterial hypertension [Recovered/Resolved]
  - Dyspnoea [Recovered/Resolved]
  - Condition aggravated [Recovered/Resolved]
